FAERS Safety Report 23895284 (Version 1)
Quarter: 2024Q2

REPORT INFORMATION
  Report Type: Report from Study
  Country: JP (occurrence: JP)
  Receive Date: 20240524
  Receipt Date: 20240524
  Transmission Date: 20240716
  Serious: Yes (Hospitalization)
  Sender: FDA-Public Use
  Company Number: JP-INSMED-2024-02051-JPAA

PATIENT
  Sex: Female

DRUGS (1)
  1. ARIKAYCE [Suspect]
     Active Substance: AMIKACIN
     Indication: Mycobacterium avium complex infection
     Dosage: UNK UNK
     Route: 055
     Dates: start: 20240515

REACTIONS (2)
  - Physical deconditioning [Unknown]
  - Pyrexia [Unknown]

NARRATIVE: CASE EVENT DATE: 20240516
